FAERS Safety Report 4273712-0 (Version None)
Quarter: 2004Q1

REPORT INFORMATION
  Report Type: 
  Country: None (occurrence: None)
  Receive Date: 20040114
  Receipt Date: 20031205
  Transmission Date: 20041129
  Serious: Yes (Hospitalization)
  Sender: FDA-Public Use
  Company Number: 03P-056-0244187-00

PATIENT
  Age: 25 Year
  Sex: Female

DRUGS (3)
  1. DEPAKENE [Suspect]
     Indication: EPILEPSY
     Dosage: PER ORAL
     Route: 048
  2. PHENOBARBITAL TAB [Suspect]
     Indication: EPILEPSY
     Dosage: PER ORAL
     Route: 048
  3. LEVETIRACETAM [Suspect]
     Indication: EPILEPSY
     Dosage: 2 DOSES FORMS, 1 IN 1 D, PER ORAL
     Route: 048
     Dates: start: 20030227, end: 20030329

REACTIONS (4)
  - AGGRESSION [None]
  - EPILEPSY [None]
  - NEUTROPENIA [None]
  - SEPTIC SHOCK [None]
